FAERS Safety Report 9718146 (Version 1)
Quarter: 2013Q4

REPORT INFORMATION
  Report Type: Spontaneous
  Country: US (occurrence: US)
  Receive Date: 20131125
  Receipt Date: 20131125
  Transmission Date: 20140711
  Serious: No
  Sender: FDA-Public Use
  Company Number: US-VIVUS-2013V1000053

PATIENT
  Age: 63 Year
  Sex: Female
  Weight: 93.52 kg

DRUGS (7)
  1. QSYMIA 3.75MG/23MG [Suspect]
     Indication: WEIGHT DECREASED
     Dosage: DAILY DOSE: 1 CAPSULE,
     Route: 048
     Dates: start: 201301, end: 201301
  2. NEXIUM [Concomitant]
  3. ZELNORM [Concomitant]
  4. CELEBREX [Concomitant]
  5. FLEXERIL [Concomitant]
  6. GLYBURIDE [Concomitant]
  7. LIPITOR [Concomitant]

REACTIONS (1)
  - Hot flush [Recovered/Resolved]
